FAERS Safety Report 24751781 (Version 1)
Quarter: 2024Q4

REPORT INFORMATION
  Report Type: Report from Study
  Country: IN (occurrence: IN)
  Receive Date: 20241219
  Receipt Date: 20241219
  Transmission Date: 20250115
  Serious: Yes (Other)
  Sender: ROCHE
  Company Number: IN-002147023-NVSC2024IN238372

PATIENT
  Age: 71 Year
  Sex: Male
  Weight: 75 kg

DRUGS (1)
  1. RANIBIZUMAB [Suspect]
     Active Substance: RANIBIZUMAB
     Indication: Neovascular age-related macular degeneration
     Dosage: 0.05 MG, QMO, (INJ ACCENTRIX GIVEN INTRAVITREAL MONTHLY)
     Route: 050
     Dates: start: 20240831, end: 20241102

REACTIONS (3)
  - Retinal degeneration [Unknown]
  - Retinal fibrosis [Unknown]
  - Chorioretinopathy [Unknown]
